FAERS Safety Report 9824624 (Version 2)
Quarter: 2015Q3

REPORT INFORMATION
  Report Type: Spontaneous
  Country: US (occurrence: US)
  Receive Date: 20140117
  Receipt Date: 20150807
  Transmission Date: 20151125
  Serious: No
  Sender: FDA-Public Use
  Company Number: US-GILEAD-2011-0039059

PATIENT
  Age: 79 Year
  Sex: Female

DRUGS (2)
  1. LETAIRIS [Suspect]
     Active Substance: AMBRISENTAN
     Indication: PRODUCT USED FOR UNKNOWN INDICATION
     Route: 048
     Dates: start: 20100723
  2. TYVASO [Concomitant]
     Active Substance: TREPROSTINIL

REACTIONS (2)
  - Oropharyngeal pain [Unknown]
  - Chest pain [Unknown]

NARRATIVE: CASE EVENT DATE: 20110501
